FAERS Safety Report 8415732-8 (Version None)
Quarter: 2012Q2

REPORT INFORMATION
  Report Type: 
  Country: None (occurrence: None)
  Receive Date: 20120606
  Receipt Date: 20110321
  Transmission Date: 20120825
  Serious: No
  Sender: FDA-Public Use
  Company Number: FR-ASTELLAS-2011EU001549

PATIENT
  Age: 26 Year
  Sex: Female

DRUGS (3)
  1. IMURAN [Suspect]
     Indication: TRANSPLANT REJECTION
     Dosage: 50 MG, TOTAL DOSE
     Route: 065
     Dates: start: 20100620, end: 20110212
  2. PREDNISONE TAB [Suspect]
     Indication: TRANSPLANT REJECTION
     Dosage: 15 MG, TOTAL DOSE
     Route: 065
     Dates: start: 20100620, end: 20110212
  3. PROGRAF [Suspect]
     Indication: TRANSPLANT REJECTION
     Dosage: 3 MG, TOTAL DOSE
     Route: 065
     Dates: start: 20100620, end: 20110212

REACTIONS (1)
  - MATERNAL EXPOSURE DURING PREGNANCY [None]
